FAERS Safety Report 6091407-8 (Version None)
Quarter: 2009Q1

REPORT INFORMATION
  Report Type: 
  Country: None (occurrence: None)
  Receive Date: 20090219
  Receipt Date: 20090219
  Transmission Date: 20090719
  Serious: Yes (Other)
  Sender: FDA-Public Use
  Company Number: None

PATIENT
  Age: 89 Year
  Sex: Female

DRUGS (6)
  1. LUCENTIS [Suspect]
     Indication: CHOROIDAL NEOVASCULARISATION
     Dosage: 1.0MG INTRAVITREAL INJ
     Dates: start: 20080416
  2. LUCENTIS [Suspect]
     Indication: CHOROIDAL NEOVASCULARISATION
     Dosage: 1.0MG INTRAVITREAL INJ
     Dates: start: 20080709
  3. LASIX [Concomitant]
  4. LISINOPRIL [Concomitant]
  5. METAPROLOL [Concomitant]
  6. COUMADIN [Concomitant]

REACTIONS (1)
  - DEEP VEIN THROMBOSIS [None]
